FAERS Safety Report 7228507-2 (Version None)
Quarter: 2011Q1

REPORT INFORMATION
  Report Type: 
  Country: None (occurrence: None)
  Receive Date: 20110117
  Receipt Date: 20110106
  Transmission Date: 20110831
  Serious: Yes (Hospitalization, Disabling, Other)
  Sender: FDA-Public Use
  Company Number: US-BIOGENIDEC-2009BI013640

PATIENT
  Age: 62 Year
  Sex: Female
  Weight: 73 kg

DRUGS (11)
  1. NEURONTIN [Concomitant]
     Route: 048
  2. BACLOFEN [Concomitant]
     Route: 048
  3. LYRICA [Concomitant]
     Route: 048
  4. LASIX [Concomitant]
     Route: 048
  5. AMITRIPTYLINE [Concomitant]
     Route: 048
  6. PROZAC [Concomitant]
     Route: 048
  7. KEPPRA [Concomitant]
  8. TEMAZEPAM [Concomitant]
     Route: 048
  9. RITALIN [Concomitant]
     Route: 048
  10. MESTINON [Concomitant]
     Route: 048
  11. TYSABRI [Suspect]
     Indication: MULTIPLE SCLEROSIS
     Route: 042
     Dates: start: 20080801

REACTIONS (1)
  - GRAND MAL CONVULSION [None]
